FAERS Safety Report 7678793-X (Version None)
Quarter: 2011Q3

REPORT INFORMATION
  Report Type: 
  Country: None (occurrence: None)
  Receive Date: 20110811
  Receipt Date: 20110802
  Transmission Date: 20111222
  Serious: Yes (Other)
  Sender: FDA-Public Use
  Company Number: US-ASTRAZENECA-2010SE36797

PATIENT
  Age: 51 Year
  Sex: Female

DRUGS (13)
  1. NASACORT [Concomitant]
     Indication: BRONCHITIS
  2. ZOLOFT [Concomitant]
     Indication: DEPRESSION
  3. AMBIEN [Concomitant]
  4. NASACORT [Concomitant]
     Indication: ASTHMA
  5. VALTURNA [Concomitant]
     Indication: DEPRESSION
  6. SPIRIVA [Concomitant]
     Indication: BRONCHITIS
  7. SYMBICORT [Suspect]
     Indication: ASTHMA
     Route: 055
  8. SEROQUEL [Suspect]
     Route: 048
     Dates: start: 20100101, end: 20100101
  9. PROTONIX [Concomitant]
  10. SYMBICORT [Suspect]
     Indication: BRONCHITIS
     Route: 055
  11. SPIRIVA [Concomitant]
     Indication: ASTHMA
  12. SEROQUEL [Suspect]
     Indication: MAJOR DEPRESSION
     Route: 048
     Dates: start: 20100101, end: 20100101
  13. HYDROCODONE [Concomitant]
     Indication: PAIN

REACTIONS (4)
  - FORMICATION [None]
  - RENAL FAILURE [None]
  - MUSCLE SPASMS [None]
  - TREMOR [None]
